FAERS Safety Report 7875319-2 (Version None)
Quarter: 2011Q4

REPORT INFORMATION
  Report Type: 
  Country: None (occurrence: None)
  Receive Date: 20111031
  Receipt Date: 20111017
  Transmission Date: 20120403
  Serious: Yes (Other)
  Sender: FDA-Public Use
  Company Number: PHHY2011CA09343

PATIENT
  Sex: Female

DRUGS (1)
  1. SANDOSTATIN LAR [Suspect]
     Indication: NEUROENDOCRINE TUMOUR
     Dosage: 30 MG, EVERY 4 WEEKS
     Route: 030
     Dates: start: 20090909

REACTIONS (7)
  - GAIT DISTURBANCE [None]
  - INJECTION SITE PAIN [None]
  - OSTEOPOROSIS [None]
  - FATIGUE [None]
  - ARTHRITIS [None]
  - LIMB DISCOMFORT [None]
  - JOINT SWELLING [None]
